FAERS Safety Report 7698955-5 (Version None)
Quarter: 2011Q3

REPORT INFORMATION
  Report Type: 
  Country: None (occurrence: None)
  Receive Date: 20110819
  Receipt Date: 20110811
  Transmission Date: 20111222
  Serious: Yes (Hospitalization)
  Sender: FDA-Public Use
  Company Number: US-PURDUE-USA-2011-0073359

PATIENT
  Age: 35 Year
  Sex: Male
  Weight: 136 kg

DRUGS (5)
  1. DILAUDID [Suspect]
     Indication: NEUROPATHY PERIPHERAL
     Dosage: UNK
     Dates: end: 20110701
  2. INSULIN [Concomitant]
     Indication: DIABETES MELLITUS
     Dosage: 30 MG, BID
  3. SEROQUEL [Concomitant]
     Indication: SLEEP DISORDER
     Dosage: 100 MG, DAILY
     Route: 048
     Dates: start: 20110101
  4. VIAGRA [Suspect]
     Indication: ERECTILE DYSFUNCTION
     Dosage: 100 MG, UNK
     Route: 048
  5. LYRICA [Suspect]
     Indication: ANXIETY
     Dosage: 200 MG, BID
     Route: 048
     Dates: start: 20080101

REACTIONS (1)
  - LOWER LIMB FRACTURE [None]
